FAERS Safety Report 4656628-7 (Version None)
Quarter: 2005Q2

REPORT INFORMATION
  Report Type: 
  Country: None (occurrence: None)
  Receive Date: 20050506
  Receipt Date: 20050422
  Transmission Date: 20051028
  Serious: Yes (Other)
  Sender: FDA-Public Use
  Company Number: 8010286

PATIENT
  Age: 23 Year
  Sex: Female
  Weight: 55 kg

DRUGS (9)
  1. LEVETIRACETAM [Suspect]
     Indication: COMPLEX PARTIAL SEIZURES
     Dosage: 1500 MG /D PO
     Route: 048
     Dates: start: 20040402, end: 20040422
  2. LEVETIRACETAM [Suspect]
     Indication: TONIC CONVULSION
     Dosage: 1500 MG /D PO
     Route: 048
     Dates: start: 20040402, end: 20040422
  3. LEVETIRACETAM [Suspect]
     Indication: COMPLEX PARTIAL SEIZURES
     Dosage: 1500 MG 2/D PO
     Route: 048
     Dates: start: 20040422, end: 20040801
  4. LEVETIRACETAM [Suspect]
     Indication: TONIC CONVULSION
     Dosage: 1500 MG 2/D PO
     Route: 048
     Dates: start: 20040422, end: 20040801
  5. LEVETIRACETAM [Suspect]
     Indication: COMPLEX PARTIAL SEIZURES
     Dosage: 1000 MG 2/D PO
     Route: 048
     Dates: start: 20040801
  6. LEVETIRACETAM [Suspect]
     Indication: TONIC CONVULSION
     Dosage: 1000 MG 2/D PO
     Route: 048
     Dates: start: 20040801
  7. TOPIRAMATE [Concomitant]
  8. PRIMIDONE [Concomitant]
  9. RISPERIDONE [Concomitant]

REACTIONS (5)
  - DELUSION [None]
  - ELECTROENCEPHALOGRAM ABNORMAL [None]
  - HALLUCINATION, VISUAL [None]
  - PETIT MAL EPILEPSY [None]
  - PSYCHOTIC DISORDER [None]
